FAERS Safety Report 21535921 (Version 1)
Quarter: 2022Q4

REPORT INFORMATION
  Report Type: Spontaneous
  Country: IT (occurrence: IT)
  Receive Date: 20221101
  Receipt Date: 20221101
  Transmission Date: 20230112
  Serious: Yes (Hospitalization)
  Sender: FDA-Public Use
  Company Number: IT-LISAPHARMA-220145

PATIENT
  Age: 42 Month
  Sex: Male

DRUGS (1)
  1. METHYLPREDNISOLONE SODIUM SUCCINATE [Suspect]
     Active Substance: METHYLPREDNISOLONE SODIUM SUCCINATE
     Indication: Autoimmune haemolytic anaemia
     Dosage: 2 MG/KG, (8 H)

REACTIONS (2)
  - Condition aggravated [Recovering/Resolving]
  - Chromaturia [Recovering/Resolving]
